FAERS Safety Report 18400262 (Version 2)
Quarter: 2021Q1

REPORT INFORMATION
  Report Type: Spontaneous
  Country: US (occurrence: US)
  Receive Date: 20201019
  Receipt Date: 20210108
  Transmission Date: 20210419
  Serious: Yes (Death)
  Sender: FDA-Public Use
  Company Number: US-PFIZER INC-2020322731

PATIENT
  Age: 74 Year
  Sex: Male
  Weight: 49.9 kg

DRUGS (8)
  1. BRAFTOVI [Suspect]
     Active Substance: ENCORAFENIB
     Indication: LUNG DISORDER
     Dosage: UNK
     Dates: start: 202009, end: 202011
  2. MEKTOVI [Suspect]
     Active Substance: BINIMETINIB
     Indication: METASTASES TO BONE
  3. BRAFTOVI [Suspect]
     Active Substance: ENCORAFENIB
     Indication: BLADDER CANCER STAGE IV
  4. MEKTOVI [Suspect]
     Active Substance: BINIMETINIB
     Indication: BLADDER CANCER
     Dosage: 45 MG
  5. BRAFTOVI [Suspect]
     Active Substance: ENCORAFENIB
     Indication: BLADDER CANCER
     Dosage: 450 MG
  6. MEKTOVI [Suspect]
     Active Substance: BINIMETINIB
     Indication: LUNG DISORDER
     Dosage: UNK
     Dates: start: 202009, end: 202011
  7. MEKTOVI [Suspect]
     Active Substance: BINIMETINIB
     Indication: BLADDER CANCER STAGE IV
  8. BRAFTOVI [Suspect]
     Active Substance: ENCORAFENIB
     Indication: METASTASES TO BONE

REACTIONS (3)
  - Off label use [Unknown]
  - Neoplasm progression [Fatal]
  - Hypersomnia [Unknown]
